FAERS Safety Report 4490899-5 (Version None)
Quarter: 2004Q4

REPORT INFORMATION
  Report Type: 
  Country: None (occurrence: None)
  Receive Date: 20041028
  Receipt Date: 20041015
  Transmission Date: 20050328
  Serious: Yes (Hospitalization)
  Sender: FDA-Public Use
  Company Number: 200406598

PATIENT
  Age: 44 Year
  Sex: Female
  Weight: 83.9154 kg

DRUGS (5)
  1. BOTOX [Suspect]
     Indication: MUSCLE SPASMS
     Dosage: 200 UNITS PRN IM
     Route: 030
     Dates: start: 20040608, end: 20040608
  2. ELAVIL [Concomitant]
  3. RESTORIL [Concomitant]
  4. CLARINEX [Concomitant]
  5. NEURONTIN [Concomitant]

REACTIONS (10)
  - CEREBROVASCULAR ACCIDENT [None]
  - CONDITION AGGRAVATED [None]
  - DYSPHAGIA [None]
  - HYPOAESTHESIA [None]
  - MOVEMENT DISORDER [None]
  - MULTIPLE SCLEROSIS [None]
  - MUSCLE SPASMS [None]
  - NECK INJURY [None]
  - PRURITUS [None]
  - VOMITING [None]
